FAERS Safety Report 14160035 (Version 1)
Quarter: 2017Q4

REPORT INFORMATION
  Report Type: Spontaneous
  Country: IT (occurrence: IT)
  Receive Date: 20171103
  Receipt Date: 20171103
  Transmission Date: 20180321
  Serious: Yes (Hospitalization, Other)
  Sender: FDA-Public Use
  Company Number: IT-IMPAX LABORATORIES, INC-2017-IPXL-03032

PATIENT
  Age: 41 Year
  Sex: Female

DRUGS (1)
  1. DIVALPROEX SODIUM ER [Suspect]
     Active Substance: DIVALPROEX SODIUM
     Indication: HEAD INJURY
     Dosage: UNK
     Route: 065

REACTIONS (4)
  - Staphylococcal sepsis [Unknown]
  - Enterococcal infection [Unknown]
  - Toxic epidermal necrolysis [Recovered/Resolved]
  - Hepatomegaly [Unknown]
